FAERS Safety Report 10214683 (Version 1)
Quarter: 2014Q2

REPORT INFORMATION
  Report Type: Spontaneous
  Country: US (occurrence: US)
  Receive Date: 20140603
  Receipt Date: 20140603
  Transmission Date: 20141212
  Serious: Yes (Death, Other)
  Sender: FDA-Public Use
  Company Number: US-ELI_LILLY_AND_COMPANY-US201406000165

PATIENT
  Age: 50 Year
  Sex: Female

DRUGS (1)
  1. EFFIENT [Suspect]
     Indication: THROMBOSIS IN DEVICE
     Route: 065

REACTIONS (1)
  - Thrombosis in device [Fatal]
